FAERS Safety Report 8430382-5 (Version None)
Quarter: 2012Q2

REPORT INFORMATION
  Report Type: 
  Country: None (occurrence: None)
  Receive Date: 20120612
  Receipt Date: 20120604
  Transmission Date: 20120825
  Serious: Yes (Death, Hospitalization)
  Sender: FDA-Public Use
  Company Number: US-TEVA-341186USA

PATIENT
  Sex: Male

DRUGS (1)
  1. COPAXONE [Suspect]
     Indication: MULTIPLE SCLEROSIS
     Route: 058
     Dates: start: 20081030, end: 20120530

REACTIONS (4)
  - PANCREATITIS [None]
  - CONDITION AGGRAVATED [None]
  - PNEUMONIA [None]
  - MULTIPLE SCLEROSIS [None]
